FAERS Safety Report 8227325-6 (Version None)
Quarter: 2012Q1

REPORT INFORMATION
  Report Type: 
  Country: None (occurrence: None)
  Receive Date: 20120322
  Receipt Date: 20120316
  Transmission Date: 20120608
  Serious: Yes (Other)
  Sender: FDA-Public Use
  Company Number: PHHY2010CA06869

PATIENT
  Sex: Male

DRUGS (3)
  1. SANDOSTATIN LAR [Suspect]
     Dosage: 30 MG, QMO
     Route: 030
  2. SANDOSTATIN LAR [Suspect]
     Indication: METASTATIC CARCINOID TUMOUR
     Dosage: 20 MG, EVERY 4 WEEKS
     Route: 030
     Dates: start: 20100203
  3. SANDOSTATIN LAR [Suspect]
     Dosage: 20 MG, QMO
     Route: 048

REACTIONS (7)
  - INJECTION SITE INJURY [None]
  - WEIGHT DECREASED [None]
  - MYALGIA [None]
  - BLOOD PRESSURE INCREASED [None]
  - PAIN IN EXTREMITY [None]
  - INJECTION SITE PAIN [None]
  - ABDOMINAL PAIN [None]
